FAERS Safety Report 9516057 (Version 2)
Quarter: 2013Q3

REPORT INFORMATION
  Report Type: Spontaneous
  Country: JP (occurrence: None)
  Receive Date: 20130909
  Receipt Date: 20130917
  Transmission Date: 20140515
  Serious: Yes (Hospitalization)
  Sender: FDA-Public Use
  Company Number: JP-012884

PATIENT
  Age: 85 Year
  Sex: Male
  Weight: 41 kg

DRUGS (13)
  1. DEGARELIX (GONAX) [Suspect]
     Indication: PROSTATE CANCER
     Route: 058
     Dates: start: 20130725, end: 20130725
  2. CASODEX [Suspect]
     Indication: PROSTATE CANCER
     Dosage: 80 MG UID/QD ORAL?
     Route: 048
     Dates: start: 20130725, end: 201308
  3. CARVEDILOL [Concomitant]
  4. LASIX/00032601 [Concomitant]
  5. ATELEC [Concomitant]
  6. MEDET [Concomitant]
  7. MAGMITT [Concomitant]
  8. MICARDIS [Concomitant]
  9. JANUVIA [Concomitant]
  10. GLIMEPIRIDE [Concomitant]
  11. HERBAL EXTRACT NOS W/MINERALS NOS/VITAMINS NO [Concomitant]
  12. PRORANON [Concomitant]
  13. HARNAL [Concomitant]

REACTIONS (3)
  - Cardiac failure [None]
  - Chest discomfort [None]
  - Pleural effusion [None]
